FAERS Safety Report 7450701 (Version 2)
Quarter: 2020Q3

REPORT INFORMATION
  Report Type: Report from Study
  Country: CL (occurrence: CL)
  Receive Date: 20100701
  Receipt Date: 20100707
  Transmission Date: 20201104
  Serious: Yes (Hospitalization)
  Sender: FDA-Public Use
  Company Number: CL-WYE-H15896210

PATIENT
  Age: 77 Year
  Sex: Female
  Weight: 65.5 kg

DRUGS (2)
  1. INTERFERON ALFA NOS [Suspect]
     Active Substance: INTERFERON ALFA-2A OR INTERFERON ALFA-2B
     Indication: RENAL CELL CARCINOMA
     Dosage: 3 MU THREE TIMES PER WEEK
     Route: 058
     Dates: start: 20100611, end: 20100616
  2. AVASTIN [Suspect]
     Active Substance: BEVACIZUMAB
     Indication: RENAL CELL CARCINOMA
     Route: 042
     Dates: start: 20100611, end: 20100616

REACTIONS (1)
  - Fatigue [Recovered/Resolved]

NARRATIVE: CASE EVENT DATE: 20100622
